FAERS Safety Report 18995254 (Version 1)
Quarter: 2021Q1

REPORT INFORMATION
  Report Type: Report from Study
  Country: CZ (occurrence: CZ)
  Receive Date: 20210311
  Receipt Date: 20210311
  Transmission Date: 20210420
  Serious: Yes (Hospitalization)
  Sender: FDA-Public Use
  Company Number: CZ-ROCHE-2786920

PATIENT
  Age: 29 Year
  Sex: Female
  Weight: 53 kg

DRUGS (3)
  1. ATEZOLIZUMAB. [Suspect]
     Active Substance: ATEZOLIZUMAB
     Indication: CERVIX CARCINOMA
     Route: 042
     Dates: start: 20210202, end: 20210202
  2. VACCINES [Suspect]
     Active Substance: UNSPECIFIED INGREDIENT
     Indication: CERVIX CARCINOMA
     Route: 030
     Dates: start: 20210202, end: 20210202
  3. MALTOFER [Concomitant]
     Route: 048
     Dates: start: 20210113

REACTIONS (1)
  - Anaemia [Recovered/Resolved]

NARRATIVE: CASE EVENT DATE: 20210223
